FAERS Safety Report 10583335 (Version 1)
Quarter: 2014Q4

REPORT INFORMATION
  Report Type: Spontaneous
  Country: JP (occurrence: None)
  Receive Date: 20141112
  Receipt Date: 20141112
  Transmission Date: 20150529
  Serious: Yes (Hospitalization)
  Sender: FDA-Public Use
  Company Number: FK201404975

PATIENT
  Age: 41 Year
  Sex: Female

DRUGS (5)
  1. DOXORUBICIN (MANUFACTURER UNKNOWN) (DOXORUBICIN) (DOXORUBICIN) [Suspect]
     Active Substance: DOXORUBICIN
     Indication: OSTEOSARCOMA
  2. METHOTREXATE [Concomitant]
     Active Substance: METHOTREXATE
  3. VINCRISTINE [Concomitant]
     Active Substance: VINCRISTINE
  4. IFOSFAMIDE (MANUFACTURER UNKNOWN) (IFOSFAMIDE) (IFOSFAMIDE) [Suspect]
     Active Substance: IFOSFAMIDE
     Indication: OSTEOSARCOMA
     Dosage: TOTAL
  5. ACTINOMYCIN D [Concomitant]
     Active Substance: DACTINOMYCIN

REACTIONS (11)
  - Vertigo [None]
  - Metastatic squamous cell carcinoma [None]
  - Progesterone receptor assay positive [None]
  - Tongue neoplasm malignant stage unspecified [None]
  - C-telopeptide increased [None]
  - Oestrogen receptor assay positive [None]
  - Papillary thyroid cancer [None]
  - Metastases to lymph nodes [None]
  - Mammogram abnormal [None]
  - Ultrasound scan abnormal [None]
  - Intraductal proliferative breast lesion [None]
